FAERS Safety Report 9639908 (Version 1)
Quarter: 2013Q4

REPORT INFORMATION
  Report Type: Spontaneous
  Country: AR (occurrence: AR)
  Receive Date: 20131023
  Receipt Date: 20131023
  Transmission Date: 20140711
  Serious: Yes (Other)
  Sender: FDA-Public Use
  Company Number: AR-AMGEN-ARGSP2013074715

PATIENT
  Sex: Female

DRUGS (1)
  1. ENBREL [Suspect]
     Indication: RHEUMATOID ARTHRITIS
     Dosage: 50 MG, WEEKLY
     Route: 065
     Dates: start: 20050101

REACTIONS (5)
  - Bunion [Recovering/Resolving]
  - Pain [Recovering/Resolving]
  - Hyperkeratosis [Recovering/Resolving]
  - Foot deformity [Unknown]
  - Fear [Unknown]
